FAERS Safety Report 17834795 (Version 2)
Quarter: 2020Q2

REPORT INFORMATION
  Report Type: Report from Study
  Country: None (occurrence: US)
  Receive Date: 20200528
  Receipt Date: 20200629
  Transmission Date: 20200714
  Serious: Yes (Other)
  Sender: FDA-Public Use
  Company Number: US-ABBVIE-20K-163-3361253-00

PATIENT
  Age: 69 Year
  Sex: Male

DRUGS (5)
  1. HUMIRA [Suspect]
     Active Substance: ADALIMUMAB
     Indication: PSORIASIS
  2. PREDNISONE. [Suspect]
     Active Substance: PREDNISONE
     Indication: PRODUCT USED FOR UNKNOWN INDICATION
     Route: 065
  3. HUMIRA [Suspect]
     Active Substance: ADALIMUMAB
     Indication: PSORIASIS
  4. HUMIRA [Suspect]
     Active Substance: ADALIMUMAB
     Indication: PSORIATIC ARTHROPATHY
     Route: 058
  5. HUMIRA [Suspect]
     Active Substance: ADALIMUMAB
     Indication: PSORIATIC ARTHROPATHY
     Dosage: CITRATE FREE
     Route: 058

REACTIONS (27)
  - Tuberculosis [Unknown]
  - Anxiety [Unknown]
  - Enzyme level increased [Unknown]
  - Drug ineffective [Unknown]
  - Initial insomnia [Unknown]
  - Dizziness [Unknown]
  - Post-traumatic stress disorder [Unknown]
  - Neck pain [Unknown]
  - Amnesia [Unknown]
  - Loss of consciousness [Unknown]
  - Psoriasis [Unknown]
  - Deafness [Unknown]
  - Wrong technique in product usage process [Unknown]
  - Diabetes mellitus [Recovered/Resolved]
  - Retching [Unknown]
  - Back pain [Unknown]
  - Pain [Unknown]
  - Blood glucose increased [Unknown]
  - Arthritis [Unknown]
  - Injection site pain [Unknown]
  - Rash macular [Unknown]
  - Transient ischaemic attack [Unknown]
  - Cough [Unknown]
  - Stress [Unknown]
  - Injection site pain [Recovered/Resolved]
  - Balance disorder [Unknown]
  - Gastrointestinal disorder [Unknown]

NARRATIVE: CASE EVENT DATE: 2020
